FAERS Safety Report 4444008-9 (Version None)
Quarter: 2004Q3

REPORT INFORMATION
  Report Type: 
  Country: None (occurrence: None)
  Receive Date: 20040729
  Receipt Date: 20030522
  Transmission Date: 20050211
  Serious: Yes (Hospitalization, Other)
  Sender: FDA-Public Use
  Company Number: USA-2003-0006704

PATIENT
  Age: 49 Year
  Sex: Male
  Weight: 59.4 kg

DRUGS (13)
  1. MS CONTIN [Suspect]
     Indication: PAIN
     Dosage: 60 MG, BID, ORAL
     Route: 048
     Dates: start: 19990101, end: 20010927
  2. COCAINE (COCAINE) [Suspect]
     Dosage: SEE TEXT
  3. MARIJUANA (CANNABIS) [Suspect]
     Dosage: SEE TEXT
  4. CELEBREX [Concomitant]
  5. REMERON [Concomitant]
  6. PREDNISONE [Concomitant]
  7. ARAVA [Concomitant]
  8. ELAVIL [Concomitant]
  9. METHOTREXATE [Concomitant]
  10. FOLIC ACID [Concomitant]
  11. VISTARIL [Concomitant]
  12. CLONIDINE HCL [Concomitant]
  13. TORADOL [Concomitant]

REACTIONS (16)
  - ANXIETY [None]
  - CONSTIPATION [None]
  - DEPRESSION [None]
  - DRUG ABUSER [None]
  - DRUG DEPENDENCE [None]
  - DRUG TOLERANCE [None]
  - DRUG WITHDRAWAL SYNDROME [None]
  - FATIGUE [None]
  - NIGHT SWEATS [None]
  - NODULE [None]
  - OEDEMA PERIPHERAL [None]
  - PAIN [None]
  - SLEEP DISORDER [None]
  - SUICIDAL IDEATION [None]
  - WEIGHT DECREASED [None]
  - WEIGHT INCREASED [None]
